FAERS Safety Report 26157479 (Version 2)
Quarter: 2025Q4

REPORT INFORMATION
  Report Type: Spontaneous
  Country: US (occurrence: US)
  Receive Date: 20251215
  Receipt Date: 20251226
  Transmission Date: 20260118
  Serious: Yes (Other)
  Sender: BAYER HEALTHCARE PHARMACEUTICALS INC.
  Company Number: US-BAYER-2025A161651

PATIENT
  Age: 63 Year
  Sex: Male

DRUGS (1)
  1. KERENDIA [Suspect]
     Active Substance: FINERENONE
     Dosage: UNK
     Route: 048

REACTIONS (2)
  - Creatinine urine increased [Not Recovered/Not Resolved]
  - Blood glucose increased [None]

NARRATIVE: CASE EVENT DATE: 20250301
